FAERS Safety Report 16508421 (Version 1)
Quarter: 2019Q3

REPORT INFORMATION
  Report Type: Spontaneous
  Country: US (occurrence: US)
  Receive Date: 20190702
  Receipt Date: 20190702
  Transmission Date: 20191004
  Serious: No
  Sender: FDA-Public Use
  Company Number: US-ROCHE-2279283

PATIENT
  Age: 62 Year
  Sex: Female

DRUGS (7)
  1. LONSURF [Concomitant]
     Active Substance: TIPIRACIL HYDROCHLORIDE\TRIFLURIDINE
  2. REGORAFENIB. [Concomitant]
     Active Substance: REGORAFENIB
     Route: 065
  3. OXALIPLATIN. [Concomitant]
     Active Substance: OXALIPLATIN
  4. IRINOTECAN [Concomitant]
     Active Substance: IRINOTECAN
  5. FOLINIC ACID [Concomitant]
     Active Substance: LEUCOVORIN
  6. XELODA [Suspect]
     Active Substance: CAPECITABINE
     Indication: ADENOCARCINOMA OF COLON
     Route: 065
  7. FLUOROURACIL. [Concomitant]
     Active Substance: FLUOROURACIL

REACTIONS (2)
  - Drug ineffective [Unknown]
  - Mucosal inflammation [Unknown]
